FAERS Safety Report 5857729-8 (Version None)
Quarter: 2008Q3

REPORT INFORMATION
  Report Type: 
  Country: None (occurrence: None)
  Receive Date: 20080825
  Receipt Date: 20080825
  Transmission Date: 20090109
  Serious: Yes (Other)
  Sender: FDA-Public Use
  Company Number: None

PATIENT
  Age: 84 Year
  Sex: Female
  Weight: 61.2356 kg

DRUGS (2)
  1. RECLAST [Suspect]
     Indication: OSTEOPOROSIS
     Dosage: 5 MG IN 100ML SINGLE DOSE IV
     Route: 042
     Dates: start: 20080807, end: 20080807
  2. RECLAST [Suspect]
     Indication: UPPER LIMB FRACTURE
     Dosage: 5 MG IN 100ML SINGLE DOSE IV
     Route: 042
     Dates: start: 20080807, end: 20080807

REACTIONS (6)
  - ARTHRALGIA [None]
  - ERYTHEMA [None]
  - JOINT SWELLING [None]
  - MUSCULOSKELETAL STIFFNESS [None]
  - OROPHARYNGEAL PAIN [None]
  - SYNOVIAL DISORDER [None]
